FAERS Safety Report 6284633-6 (Version None)
Quarter: 2009Q3

REPORT INFORMATION
  Report Type: 
  Country: None (occurrence: None)
  Receive Date: 20090727
  Receipt Date: 20090713
  Transmission Date: 20100115
  Serious: Yes (Hospitalization, Other)
  Sender: FDA-Public Use
  Company Number: US-ELI_LILLY_AND_COMPANY-US200906002169

PATIENT
  Sex: Female
  Weight: 130.61 kg

DRUGS (8)
  1. CYMBALTA [Suspect]
     Indication: DEPRESSION
     Dosage: 30 MG, DAILY (1/D)
  2. ZESTRIL [Concomitant]
  3. ULTRAM [Concomitant]
  4. DIFLUCAN [Concomitant]
  5. DITROPAN /USA/ [Concomitant]
  6. NORVASC [Concomitant]
  7. LOPRESSOR [Concomitant]
  8. GLUCOPHAGE [Concomitant]

REACTIONS (12)
  - ANXIETY [None]
  - CHEST DISCOMFORT [None]
  - DEPRESSION [None]
  - DRUG INEFFECTIVE [None]
  - DYSPNOEA [None]
  - LEFT VENTRICULAR HYPERTROPHY [None]
  - NEPHROLITHIASIS [None]
  - NERVE ROOT COMPRESSION [None]
  - OEDEMA PERIPHERAL [None]
  - PANIC ATTACK [None]
  - POOR QUALITY SLEEP [None]
  - TEARFULNESS [None]
